FAERS Safety Report 12181253 (Version 4)
Quarter: 2016Q2

REPORT INFORMATION
  Report Type: Spontaneous
  Country: JP (occurrence: JP)
  Receive Date: 20160315
  Receipt Date: 20160621
  Transmission Date: 20160815
  Serious: Yes (Hospitalization, Other)
  Sender: FDA-Public Use
  Company Number: JP-SA-2016SA050314

PATIENT
  Age: 60 Year
  Sex: Male

DRUGS (3)
  1. PLAVIX [Suspect]
     Active Substance: CLOPIDOGREL BISULFATE
     Indication: ANTIPLATELET THERAPY
     Route: 065
  2. ASPIRIN. [Concomitant]
     Active Substance: ASPIRIN
     Indication: ANTIPLATELET THERAPY
  3. PRASUGREL [Suspect]
     Active Substance: PRASUGREL
     Indication: ANTIPLATELET THERAPY
     Route: 065

REACTIONS (6)
  - Acute myocardial infarction [Unknown]
  - Drug ineffective [Unknown]
  - Blood creatine phosphokinase increased [Unknown]
  - Drug resistance [Unknown]
  - Angina unstable [Recovered/Resolved]
  - Vascular stent thrombosis [Recovered/Resolved]
